FAERS Safety Report 12405619 (Version 6)
Quarter: 2018Q3

REPORT INFORMATION
  Report Type: Report from Study
  Country: NO (occurrence: NO)
  Receive Date: 20160526
  Receipt Date: 20180704
  Transmission Date: 20181010
  Serious: Yes (Hospitalization)
  Sender: FDA-Public Use
  Company Number: NO-ROCHE-1655541

PATIENT
  Age: 29 Year
  Sex: Female
  Weight: 46.2 kg

DRUGS (6)
  1. PARACET (NORWAY) [Concomitant]
     Route: 048
     Dates: start: 20140923
  2. AFIPRAN [Concomitant]
     Active Substance: METOCLOPRAMIDE HYDROCHLORIDE
     Indication: PROPHYLAXIS
     Route: 048
     Dates: start: 20151008, end: 20151008
  3. IMOVANE [Concomitant]
     Active Substance: ZOPICLONE
     Route: 048
     Dates: start: 20151117
  4. KETORAX [Concomitant]
     Active Substance: KETOBEMIDONE HYDROCHLORIDE
     Indication: PNEUMOTHORAX
     Route: 042
     Dates: start: 20151007, end: 20151007
  5. ATEZOLIZUMAB. [Suspect]
     Active Substance: ATEZOLIZUMAB
     Indication: NEOPLASM
     Dosage: DATE OF MOST RECENT DOSE OF ATEZOLIZUMAB PRIOR TO SAE ONSET WAS ON 22/OCT/2015
     Route: 042
     Dates: start: 20151022, end: 20151022
  6. NEXIUM [Concomitant]
     Active Substance: ESOMEPRAZOLE MAGNESIUM
     Indication: PROPHYLAXIS
     Route: 048
     Dates: start: 20151102

REACTIONS (1)
  - Thrombocytopenia [Recovered/Resolved]

NARRATIVE: CASE EVENT DATE: 20151030
